FAERS Safety Report 15132070 (Version 2)
Quarter: 2018Q3

REPORT INFORMATION
  Report Type: Spontaneous
  Country: US (occurrence: US)
  Receive Date: 20180711
  Receipt Date: 20180719
  Transmission Date: 20181010
  Serious: No
  Sender: FDA-Public Use
  Company Number: US-GALDERMA-US17011121

PATIENT
  Age: 19 Year
  Sex: Female

DRUGS (8)
  1. FISH OIL [Concomitant]
     Active Substance: FISH OIL
     Indication: PRODUCT USED FOR UNKNOWN INDICATION
  2. CETAPHIL MOISTURIZING LOTION (DIFFERIN BALANCING MOISTURIZER) [Suspect]
     Active Substance: COSMETICS
     Indication: DRY SKIN
     Route: 061
     Dates: start: 20170925, end: 20171112
  3. COPPER [Concomitant]
     Active Substance: COPPER
     Indication: PRODUCT USED FOR UNKNOWN INDICATION
  4. ZINC. [Concomitant]
     Active Substance: ZINC
     Indication: PRODUCT USED FOR UNKNOWN INDICATION
  5. LYSINE [Concomitant]
     Active Substance: LYSINE
     Indication: PRODUCT USED FOR UNKNOWN INDICATION
  6. PRIMROSE OIL [Concomitant]
     Indication: PRODUCT USED FOR UNKNOWN INDICATION
  7. DIFFERIN GEL [Suspect]
     Active Substance: ADAPALENE
     Indication: ACNE
     Dosage: 0.1%
     Route: 061
     Dates: start: 20170925, end: 20171111
  8. DIINDOLYLMETHANE [Concomitant]
     Active Substance: 3,3^-DIINDOLYLMETHANE
     Indication: PRODUCT USED FOR UNKNOWN INDICATION

REACTIONS (2)
  - Dry skin [Not Recovered/Not Resolved]
  - Erythema [Not Recovered/Not Resolved]
